FAERS Safety Report 16767533 (Version 1)
Quarter: 2019Q3

REPORT INFORMATION
  Report Type: Spontaneous
  Country: US (occurrence: US)
  Receive Date: 20190903
  Receipt Date: 20190903
  Transmission Date: 20191005
  Serious: No
  Sender: FDA-Public Use
  Company Number: US-SA-2019SA129945

PATIENT
  Age: 65 Year
  Sex: Female

DRUGS (22)
  1. KEVZARA [Suspect]
     Active Substance: SARILUMAB
     Dosage: 200 MG, QOW
     Route: 058
     Dates: start: 201902
  2. ACETAMINOPHEN. [Concomitant]
     Active Substance: ACETAMINOPHEN
  3. FOLIC ACID. [Concomitant]
     Active Substance: FOLIC ACID
  4. LISINOPRIL. [Concomitant]
     Active Substance: LISINOPRIL
  5. TOBRAMYCIN. [Concomitant]
     Active Substance: TOBRAMYCIN
  6. TRAMADOL HCL [Concomitant]
     Active Substance: TRAMADOL HYDROCHLORIDE
  7. ACYCLOVIR [ACICLOVIR] [Concomitant]
     Active Substance: ACYCLOVIR
  8. BACLOFEN. [Concomitant]
     Active Substance: BACLOFEN
  9. GABAPENTIN. [Concomitant]
     Active Substance: GABAPENTIN
  10. CYCLOBENZAPRIN [Concomitant]
     Active Substance: CYCLOBENZAPRINE
  11. FLUTICASON [Concomitant]
     Active Substance: FLUTICASONE
  12. NEOMYCIN. [Concomitant]
     Active Substance: NEOMYCIN
  13. TRAZODON [Concomitant]
     Active Substance: TRAZODONE HYDROCHLORIDE
  14. RANITIDINE. [Concomitant]
     Active Substance: RANITIDINE
  15. DULOXETINE. [Concomitant]
     Active Substance: DULOXETINE
  16. NYSTOP [Concomitant]
     Active Substance: NYSTATIN
  17. PREDNISONE. [Concomitant]
     Active Substance: PREDNISONE
  18. AZACITIDINE. [Concomitant]
     Active Substance: AZACITIDINE
  19. METHOTREXATE. [Concomitant]
     Active Substance: METHOTREXATE
  20. POLYMYCIN [Concomitant]
     Active Substance: POLYMYXIN
  21. DICLOFENAC [Concomitant]
     Active Substance: DICLOFENAC
  22. RESTASIS [Concomitant]
     Active Substance: CYCLOSPORINE

REACTIONS (5)
  - Disease recurrence [Recovered/Resolved]
  - Anxiety [Recovered/Resolved]
  - Weight increased [Recovered/Resolved]
  - Drug ineffective [Recovered/Resolved]
  - Hyperphagia [Recovered/Resolved]

NARRATIVE: CASE EVENT DATE: 2019
